FAERS Safety Report 7057349-6 (Version None)
Quarter: 2010Q4

REPORT INFORMATION
  Report Type: 
  Country: None (occurrence: None)
  Receive Date: 20101022
  Receipt Date: 20101011
  Transmission Date: 20110411
  Serious: Yes (Hospitalization)
  Sender: FDA-Public Use
  Company Number: US-WYE-H18109210

PATIENT
  Sex: Female

DRUGS (6)
  1. TEMSIROLIMUS [Suspect]
     Indication: BREAST CANCER
     Dosage: NOT PROVIDED
     Route: 042
     Dates: start: 20100622, end: 20101005
  2. ZOLPIDEM TARTRATE [Concomitant]
     Dosage: 10 MG
     Route: 065
     Dates: start: 20050125
  3. ZOLPIDEM TARTRATE [Concomitant]
     Dosage: 10 MG
     Route: 065
     Dates: start: 20100127
  4. VENLAFAXINE HYDROCHLORIDE [Concomitant]
     Dosage: 150 MG
     Route: 065
     Dates: start: 20060201
  5. NERATINIB [Suspect]
     Indication: BREAST CANCER
     Dosage: NOT PROVIDED
     Route: 048
     Dates: start: 20100622, end: 20101008
  6. LOSARTAN POTASSIUM [Concomitant]
     Indication: HYPERTENSION
     Route: 065
     Dates: start: 20090404

REACTIONS (8)
  - CHEST PAIN [None]
  - FATIGUE [None]
  - HEADACHE [None]
  - HYPERTENSION [None]
  - INSOMNIA [None]
  - MUSCULOSKELETAL PAIN [None]
  - NAUSEA [None]
  - VISION BLURRED [None]
